FAERS Safety Report 11410227 (Version 1)
Quarter: 2015Q3

REPORT INFORMATION
  Report Type: Spontaneous
  Country: US (occurrence: US)
  Receive Date: 20150824
  Receipt Date: 20150824
  Transmission Date: 20151125
  Serious: Yes (Death, Hospitalization)
  Sender: FDA-Public Use
  Company Number: US-UNITED THERAPEUTICS-UNT-2015-010107

PATIENT
  Sex: Female

DRUGS (2)
  1. REMODULIN [Suspect]
     Active Substance: TREPROSTINIL
     Indication: PRODUCT USED FOR UNKNOWN INDICATION
     Dosage: 0.035 ?G/KG, CONTINUING
     Route: 041
     Dates: start: 20141219
  2. REMODULIN [Suspect]
     Active Substance: TREPROSTINIL
     Dosage: 0.035 ?G/KG, CONTINUING
     Route: 041
     Dates: start: 20150528, end: 20150816

REACTIONS (3)
  - Dyspnoea [Unknown]
  - Cardiac failure congestive [Fatal]
  - Oedema [Unknown]

NARRATIVE: CASE EVENT DATE: 20150812
